FAERS Safety Report 19438748 (Version 2)
Quarter: 2021Q3

REPORT INFORMATION
  Report Type: Spontaneous
  Country: IE (occurrence: IE)
  Receive Date: 20210618
  Receipt Date: 20210713
  Transmission Date: 20211014
  Serious: Yes (Disabling)
  Sender: FDA-Public Use
  Company Number: IE-MYLANLABS-2021M1035416

PATIENT
  Age: 62 Year
  Sex: Male
  Weight: 76.27 kg

DRUGS (4)
  1. BISOP [Concomitant]
     Indication: ANGINA PECTORIS
     Dosage: 1.25 MILLIGRAM, QD (1 TABLET)
     Dates: start: 20111231
  2. CLOPIDOGREL [Suspect]
     Active Substance: CLOPIDOGREL BISULFATE
     Indication: STENT PLACEMENT
     Dosage: 75 MILLIGRAM, QD (1 TABLET)
     Route: 048
     Dates: start: 20201102, end: 20201218
  3. NUPRIN                             /00002701/ [Concomitant]
     Indication: ANGINA PECTORIS
     Dosage: 75 MILLIGRAM, QD (1 TABLET)
     Dates: start: 20111230
  4. ROSUVASTATIN. [Concomitant]
     Active Substance: ROSUVASTATIN
     Indication: ANGINA PECTORIS
     Dosage: 10 MILLIGRAM, QD (1 TABLET)
     Dates: start: 20111231

REACTIONS (3)
  - Balance disorder [Recovering/Resolving]
  - Dizziness [Recovering/Resolving]
  - Vertigo [Recovering/Resolving]
